FAERS Safety Report 4585698-X (Version None)
Quarter: 2005Q1

REPORT INFORMATION
  Report Type: 
  Country: None (occurrence: None)
  Receive Date: 20050217
  Receipt Date: 20050105
  Transmission Date: 20050727
  Serious: Yes (Death)
  Sender: FDA-Public Use
  Company Number: PHBS2005JP00514

PATIENT
  Age: 30 Year
  Sex: Male
  Weight: 60 kg

DRUGS (6)
  1. RISPERDAL [Suspect]
     Indication: SCHIZOPHRENIA
     Dosage: 12 MG, QD
     Route: 048
     Dates: start: 20040401
  2. BARNETIL [Suspect]
     Indication: SCHIZOPHRENIA
     Dosage: 300 MG, TID
     Route: 048
     Dates: start: 20041201
  3. LODOPIN [Concomitant]
     Indication: SCHIZOPHRENIA
     Dosage: 450 MG/DAY
     Route: 048
     Dates: start: 20040201, end: 20041130
  4. ALEVIATIN [Concomitant]
     Indication: EPILEPSY
     Dosage: 250 MG/DAY
     Route: 048
     Dates: start: 20041101
  5. LEVOTOMIN [Concomitant]
     Indication: SCHIZOPHRENIA
     Dosage: 300 MG/DAY
     Route: 048
     Dates: start: 20040901, end: 20041102
  6. TEGRETOL [Suspect]
     Indication: SCHIZOPHRENIA
     Dosage: 400 MG, BID
     Route: 048
     Dates: start: 20020201

REACTIONS (4)
  - CARDIAC FAILURE ACUTE [None]
  - CARDIO-RESPIRATORY ARREST [None]
  - CONDUCTION DISORDER [None]
  - SUDDEN DEATH [None]
